FAERS Safety Report 15482582 (Version 4)
Quarter: 2019Q2

REPORT INFORMATION
  Report Type: Spontaneous
  Country: US (occurrence: US)
  Receive Date: 20181010
  Receipt Date: 20190410
  Transmission Date: 20190711
  Serious: Yes (Other)
  Sender: FDA-Public Use
  Company Number: US-PFIZER INC-2018403971

PATIENT
  Age: 82 Year
  Sex: Female
  Weight: 67.5 kg

DRUGS (2)
  1. LEVOFLOXACIN. [Suspect]
     Active Substance: LEVOFLOXACIN
     Indication: ESCHERICHIA URINARY TRACT INFECTION
     Dosage: 750 MG, UNK (ONE DOSE)
     Route: 048
  2. LEVOFLOXACIN. [Suspect]
     Active Substance: LEVOFLOXACIN
     Indication: ESCHERICHIA URINARY TRACT INFECTION
     Dosage: 750 MG, UNK (4 DAYS LATER RECEIVED ANOTHER DOSE OF LEVOFLOXACIN)
     Route: 042

REACTIONS (3)
  - Neurotoxicity [Recovered/Resolved]
  - Muscle twitching [Recovered/Resolved]
  - Myoclonus [Recovered/Resolved]
